FAERS Safety Report 25411913 (Version 2)
Quarter: 2025Q3

REPORT INFORMATION
  Report Type: Spontaneous
  Country: EU (occurrence: EU)
  Receive Date: 20250609
  Receipt Date: 20250916
  Transmission Date: 20251021
  Serious: Yes (Hospitalization)
  Sender: NOVARTIS
  Company Number: None

PATIENT
  Age: 50 Year
  Sex: Female

DRUGS (7)
  1. TEGRETOL [Suspect]
     Active Substance: CARBAMAZEPINE
     Indication: Wrong product administered
     Route: 048
     Dates: start: 20250428, end: 20250428
  2. BACLOFEN [Suspect]
     Active Substance: BACLOFEN
     Indication: Wrong product administered
     Route: 048
     Dates: start: 20250428, end: 20250428
  3. CYAMEMAZINE [Suspect]
     Active Substance: CYAMEMAZINE
     Indication: Wrong product administered
     Route: 048
     Dates: start: 20250428, end: 20250428
  4. AMITRIPTYLINE HYDROCHLORIDE [Suspect]
     Active Substance: AMITRIPTYLINE HYDROCHLORIDE
     Indication: Wrong product administered
     Route: 048
     Dates: start: 20250428, end: 20250428
  5. TRIHEXYPHENIDYL HYDROCHLORIDE [Suspect]
     Active Substance: TRIHEXYPHENIDYL HYDROCHLORIDE
     Indication: Wrong product administered
     Route: 048
     Dates: start: 20250428, end: 20250428
  6. Spasfon [Concomitant]
     Indication: Wrong product administered
     Route: 048
     Dates: start: 20250428, end: 20250428
  7. DOLIPRANE [Concomitant]
     Active Substance: ACETAMINOPHEN
     Indication: Wrong product administered
     Route: 048
     Dates: start: 20250428, end: 20250428

REACTIONS (3)
  - Seizure [Recovered/Resolved]
  - Coma [Recovered/Resolved]
  - Wrong patient received product [Recovered/Resolved]

NARRATIVE: CASE EVENT DATE: 20250428
